FAERS Safety Report 23849207 (Version 1)
Quarter: 2024Q2

REPORT INFORMATION
  Report Type: Spontaneous
  Country: US (occurrence: None)
  Receive Date: 20240511
  Receipt Date: 20240511
  Transmission Date: 20240716
  Serious: Yes (Hospitalization)
  Sender: FDA-Public Use
  Company Number: None

PATIENT
  Age: 74 Year
  Sex: Male
  Weight: 146 kg

DRUGS (1)
  1. SUCCINYLCHOLINE CHLORIDE [Suspect]
     Active Substance: SUCCINYLCHOLINE CHLORIDE
     Indication: Anaesthesia
     Dosage: OTHER STRENGTH : 100MG/VIL;?
     Dates: start: 20210320, end: 20210320

REACTIONS (6)
  - Respiratory arrest [None]
  - Sedation [None]
  - Pulmonary air leakage [None]
  - Procedural complication [None]
  - Paralysis [None]
  - Pseudocholinesterase deficiency [None]

NARRATIVE: CASE EVENT DATE: 20210320
